FAERS Safety Report 6790495-0 (Version None)
Quarter: 2010Q2

REPORT INFORMATION
  Report Type: 
  Country: None (occurrence: None)
  Receive Date: 20100624
  Receipt Date: 20100609
  Transmission Date: 20101027
  Serious: Yes (Other)
  Sender: FDA-Public Use
  Company Number: US-SHIRE-SPV1-2010-01087

PATIENT

DRUGS (1)
  1. INTUNIV [Suspect]
     Dosage: UNK, UNKNOWN
     Route: 048

REACTIONS (3)
  - BLOOD PRESSURE DECREASED [None]
  - DEHYDRATION [None]
  - LOSS OF CONSCIOUSNESS [None]
